FAERS Safety Report 16000270 (Version 1)
Quarter: 2019Q1

REPORT INFORMATION
  Report Type: Spontaneous
  Country: FR (occurrence: FR)
  Receive Date: 20190225
  Receipt Date: 20190225
  Transmission Date: 20190418
  Serious: Yes (Other)
  Sender: FDA-Public Use
  Company Number: FR-GILEAD-2018-0376509

PATIENT
  Age: 75 Year
  Sex: Male

DRUGS (4)
  1. ZYDELIG [Suspect]
     Active Substance: IDELALISIB
     Dosage: 150 MG, BID
     Route: 065
  2. OBINUTUZUMAB. [Concomitant]
     Active Substance: OBINUTUZUMAB
     Indication: B-CELL LYMPHOMA
  3. ZYDELIG [Suspect]
     Active Substance: IDELALISIB
     Indication: B-CELL LYMPHOMA
     Dosage: 150 MG, BID
     Route: 065
     Dates: start: 201811
  4. BACTRIM [Concomitant]
     Active Substance: SULFAMETHOXAZOLE\TRIMETHOPRIM
     Indication: B-CELL LYMPHOMA
     Dosage: UNK

REACTIONS (3)
  - Off label use [Not Recovered/Not Resolved]
  - Cell death [Unknown]
  - Rash [Unknown]

NARRATIVE: CASE EVENT DATE: 201811
